FAERS Safety Report 8831745 (Version 7)
Quarter: 2014Q2

REPORT INFORMATION
  Report Type: Report from Study
  Country: JP (occurrence: JP)
  Receive Date: 20121009
  Receipt Date: 20140428
  Transmission Date: 20141212
  Serious: Yes (Hospitalization, Other)
  Sender: FDA-Public Use
  Company Number: JP-VERTEX PHARMACEUTICAL INC.-2012-022444

PATIENT
  Age: 65 Year
  Sex: Female

DRUGS (10)
  1. VX-950 (TELAPREVIR) [Suspect]
     Indication: CHRONIC HEPATITIS C
     Dosage: 1500 MG, QD
     Route: 048
     Dates: start: 20120727, end: 20120813
  2. VX-950 (TELAPREVIR) [Suspect]
     Dosage: 1000 MG, QD
     Route: 048
     Dates: start: 20120814
  3. VX-950 (TELAPREVIR) [Suspect]
     Dosage: 1000 MG, QD
     Route: 048
     Dates: start: 20120824, end: 20121004
  4. REBETOL [Suspect]
     Indication: CHRONIC HEPATITIS C
     Dosage: 400 MG, QD
     Route: 048
     Dates: start: 20120727
  5. REBETOL [Suspect]
     Dosage: 200 MG, QD
     Route: 048
     Dates: start: 20120824, end: 20121004
  6. PEGINTERFERON ALFA-2B [Suspect]
     Indication: CHRONIC HEPATITIS C
     Dosage: 1.2 ?G/KG, QW
     Route: 058
     Dates: start: 20120727
  7. PEGINTERFERON ALFA-2B [Suspect]
     Dosage: 1.0 ?G/KG, QW
     Route: 058
     Dates: start: 20120824, end: 20121004
  8. CONIEL [Concomitant]
     Dosage: 4 MG, QD
     Route: 048
     Dates: end: 20120820
  9. CONIEL [Concomitant]
     Dosage: 4 MG, QD
     Route: 048
  10. MUCOSTA [Concomitant]
     Dosage: 1 DF, PRN
     Route: 048
     Dates: end: 20121016

REACTIONS (3)
  - Depressive symptom [Recovering/Resolving]
  - Anaemia [Recovered/Resolved]
  - Nausea [Recovered/Resolved]
